FAERS Safety Report 14302615 (Version 1)
Quarter: 2017Q4

REPORT INFORMATION
  Report Type: Spontaneous
  Country: US (occurrence: US)
  Receive Date: 20171219
  Receipt Date: 20171219
  Transmission Date: 20180321
  Serious: Yes (Other)
  Sender: FDA-Public Use
  Company Number: None

PATIENT
  Age: 34 Year
  Sex: Male
  Weight: 83.7 kg

DRUGS (1)
  1. MINOCYCLINE [Suspect]
     Active Substance: MINOCYCLINE\MINOCYCLINE HYDROCHLORIDE
     Indication: DERMATITIS
     Dosage: ?          QUANTITY:30 CAPSULE(S);?
     Route: 048
     Dates: start: 20171114, end: 20171216

REACTIONS (6)
  - Myalgia [None]
  - Muscle strain [None]
  - Musculoskeletal pain [None]
  - Tendon pain [None]
  - Abdominal pain upper [None]
  - Arthralgia [None]

NARRATIVE: CASE EVENT DATE: 20171205
